FAERS Safety Report 18410794 (Version 1)
Quarter: 2020Q4

REPORT INFORMATION
  Report Type: Spontaneous
  Country: US (occurrence: US)
  Receive Date: 20201021
  Receipt Date: 20201021
  Transmission Date: 20210114
  Serious: No
  Sender: FDA-Public Use
  Company Number: None

PATIENT
  Age: 29 Year
  Sex: Female
  Weight: 81.36 kg

DRUGS (7)
  1. SERTRALINE HCL ORAL [Concomitant]
  2. OMEPRAZOLE 20 MG ORAL [Concomitant]
  3. ZOFRAN 4 MG ORAL [Concomitant]
  4. VITAMIN D 25 MCG ORAL [Concomitant]
  5. XANAX 1 MG ORAL [Concomitant]
  6. TYLENOL 325 MG ORAL [Concomitant]
  7. TEMOZOLOMIDE. [Suspect]
     Active Substance: TEMOZOLOMIDE
     Indication: BRAIN NEOPLASM MALIGNANT
     Route: 048
     Dates: start: 20201008

REACTIONS (1)
  - Hypersensitivity [None]

NARRATIVE: CASE EVENT DATE: 20201021
